FAERS Safety Report 26195848 (Version 1)
Quarter: 2025Q4

REPORT INFORMATION
  Report Type: Report from Study
  Country: JP (occurrence: JP)
  Receive Date: 20251224
  Receipt Date: 20251224
  Transmission Date: 20260118
  Serious: Yes (Death, Hospitalization, Other)
  Sender: ROCHE
  Company Number: JP-CHUGAI-2023031340

PATIENT
  Age: 76 Year
  Sex: Female
  Weight: 66.90 kg

DRUGS (4)
  1. TECENTRIQ [Suspect]
     Active Substance: ATEZOLIZUMAB
     Indication: Triple negative breast cancer
     Route: 041
  2. PACLITAXEL [Suspect]
     Active Substance: PACLITAXEL
     Indication: Triple negative breast cancer
     Route: 041
     Dates: start: 20230810, end: 20240301
  3. PACLITAXEL [Suspect]
     Active Substance: PACLITAXEL
     Route: 041
  4. EDOXABAN TOSYLATE [Concomitant]
     Active Substance: EDOXABAN TOSYLATE
     Indication: Deep vein thrombosis
     Dosage: UNK
     Route: 048

REACTIONS (21)
  - Pneumonitis [Recovered/Resolved]
  - Pelvic fracture [Unknown]
  - Lower gastrointestinal haemorrhage [Recovered/Resolved]
  - Anaemia [Recovered/Resolved]
  - Cystitis [Recovered/Resolved]
  - Bone pain [Recovering/Resolving]
  - Haematuria [Recovered/Resolved]
  - Malaise [Recovered/Resolved]
  - Alopecia [Recovering/Resolving]
  - Anaemia [Not Recovered/Not Resolved]
  - Constipation [Recovering/Resolving]
  - Neutropenia [Recovered/Resolved]
  - White blood cell count decreased [Recovered/Resolved]
  - Neuropathy peripheral [Not Recovered/Not Resolved]
  - Aspartate aminotransferase increased [Not Recovered/Not Resolved]
  - Cough [Recovering/Resolving]
  - Oedema peripheral [Recovering/Resolving]
  - Hypertension [Recovering/Resolving]
  - Bronchitis [Recovering/Resolving]
  - Troponin I increased [Recovered/Resolved]
  - Disease progression [Fatal]

NARRATIVE: CASE EVENT DATE: 20230820
